FAERS Safety Report 7903604-4 (Version None)
Quarter: 2011Q4

REPORT INFORMATION
  Report Type: 
  Country: None (occurrence: None)
  Receive Date: 20111109
  Receipt Date: 20111027
  Transmission Date: 20120403
  Serious: Yes (Hospitalization, Other)
  Sender: FDA-Public Use
  Company Number: US-ELI_LILLY_AND_COMPANY-US201109008464

PATIENT
  Sex: Female

DRUGS (2)
  1. FORTEO [Suspect]
     Dosage: 20 UG, QD
     Route: 065
     Dates: end: 20111022
  2. FORTEO [Suspect]
     Indication: OSTEOPOROSIS
     Dosage: 20 UG, QD
     Route: 065
     Dates: start: 20110811

REACTIONS (11)
  - WHITE BLOOD CELL COUNT ABNORMAL [None]
  - TRANSIENT ISCHAEMIC ATTACK [None]
  - HYPOACUSIS [None]
  - FRACTURE [None]
  - FALL [None]
  - BACK PAIN [None]
  - BLINDNESS TRANSIENT [None]
  - DEPRESSION [None]
  - FATIGUE [None]
  - ASTHENIA [None]
  - URINARY TRACT INFECTION [None]
